FAERS Safety Report 4323186-6 (Version None)
Quarter: 2004Q1

REPORT INFORMATION
  Report Type: 
  Country: None (occurrence: None)
  Receive Date: 20040322
  Receipt Date: 20040308
  Transmission Date: 20041129
  Serious: Yes (Hospitalization, Other)
  Sender: FDA-Public Use
  Company Number: 2004016399

PATIENT
  Age: 81 Year
  Sex: Female

DRUGS (9)
  1. SORTIS (ATORVASTATIN) [Suspect]
     Indication: HYPERCHOLESTEROLAEMIA
     Dosage: 20 MG, DAILY, ORAL
     Route: 048
     Dates: end: 20040207
  2. OMEPRAZOLE [Suspect]
     Indication: ILL-DEFINED DISORDER
     Dosage: 20 MG, DAILY, ORAL
     Route: 048
  3. ASPIRIN [Concomitant]
  4. ATENOLOL [Concomitant]
  5. PRINZIDE [Concomitant]
  6. LEVOFLOXACIN [Concomitant]
  7. BISOLVON-LINCTUS (CHLOROFORM, BROMHEXINE HYDROCHLORIDE) [Concomitant]
  8. SERETIDE MITE (FLUTICASONE PROPIONATE, SALMETEROL XINAFOATE) [Concomitant]
  9. ACETAMINOPHEN [Concomitant]

REACTIONS (12)
  - ASTHENIA [None]
  - BLOOD CREATINE PHOSPHOKINASE INCREASED [None]
  - BLOOD CREATININE INCREASED [None]
  - BRONCHOPNEUMONIA [None]
  - DRUG INTERACTION [None]
  - FATIGUE [None]
  - FEEDING DISORDER [None]
  - INFLUENZA LIKE ILLNESS [None]
  - MYALGIA [None]
  - MYOGLOBIN BLOOD INCREASED [None]
  - MYOPATHY [None]
  - VIRAL INFECTION [None]
